FAERS Safety Report 8465611-5 (Version None)
Quarter: 2012Q2

REPORT INFORMATION
  Report Type: 
  Country: None (occurrence: None)
  Receive Date: 20120323
  Receipt Date: 20111221
  Transmission Date: 20120825
  Serious: Yes (Hospitalization)
  Sender: FDA-Public Use
  Company Number: 163-21880-11101886

PATIENT
  Age: 65 Year
  Sex: Male
  Weight: 81.6475 kg

DRUGS (7)
  1. GABAPENTIN [Concomitant]
  2. RENVELA (SEVELAMER CARBONATE) (UNKNOWN) [Concomitant]
  3. CARVEDILOL [Concomitant]
  4. VITAMIN D (ERGOCALCIFEROL) (UNKNOWN) [Concomitant]
  5. NEPHROCAPS (NEPHROCAPS) (UNKNOWN) [Concomitant]
  6. REVLIMID [Suspect]
     Indication: MULTIPLE MYELOMA
     Dosage: 10 MG, 1 IN 1 D, PO 5 MG, 1 IN 2 D, PO
     Route: 048
     Dates: start: 20110501
  7. REVLIMID [Suspect]
     Indication: MULTIPLE MYELOMA
     Dosage: 10 MG, 1 IN 1 D, PO 5 MG, 1 IN 2 D, PO
     Route: 048
     Dates: start: 20101001

REACTIONS (1)
  - CLOSTRIDIUM DIFFICILE COLITIS [None]
